FAERS Safety Report 17074972 (Version 1)
Quarter: 2019Q4

REPORT INFORMATION
  Report Type: Spontaneous
  Country: CA (occurrence: CA)
  Receive Date: 20191126
  Receipt Date: 20191126
  Transmission Date: 20200122
  Serious: Yes (Other)
  Sender: FDA-Public Use
  Company Number: CA-PFIZER INC-2019503845

PATIENT
  Age: 52 Year
  Sex: Female

DRUGS (15)
  1. ERYTHROMYCIN. [Suspect]
     Active Substance: ERYTHROMYCIN
     Dosage: UNK
  2. UMECLIDINIUM BROMIDE [Suspect]
     Active Substance: UMECLIDINIUM BROMIDE
     Indication: BRONCHIAL OBSTRUCTION
     Dosage: 1 DF, 1X/DAY
     Route: 065
  3. PENICILLIN G [Suspect]
     Active Substance: PENICILLIN G
     Dosage: UNK
  4. PREDNISONE. [Suspect]
     Active Substance: PREDNISONE
     Indication: COUGH
     Dosage: 25 MG, UNK
  5. SALBUTAMOL SULFATE [Suspect]
     Active Substance: ALBUTEROL SULFATE
     Indication: ASTHMA
     Dosage: UNK
     Route: 065
  6. CEFTRIAXONE SODIUM. [Suspect]
     Active Substance: CEFTRIAXONE SODIUM
     Dosage: UNK
  7. CLINDAMYCIN PHOSPHATE. [Suspect]
     Active Substance: CLINDAMYCIN PHOSPHATE
     Dosage: UNK
     Route: 065
  8. LEVOFLOXACIN. [Suspect]
     Active Substance: LEVOFLOXACIN
     Dosage: UNK
  9. VANCOMYCIN HCL [Suspect]
     Active Substance: VANCOMYCIN HYDROCHLORIDE
     Dosage: UNK
  10. FLOVENT [Suspect]
     Active Substance: FLUTICASONE PROPIONATE
     Indication: ASTHMA
     Dosage: UNK
  11. DOXYCYCLINE HYCLATE. [Suspect]
     Active Substance: DOXYCYCLINE HYCLATE
     Dosage: UNK
  12. BIAXIN [Suspect]
     Active Substance: CLARITHROMYCIN
     Dosage: 1000 MG, UNK
  13. SINGULAIR [Suspect]
     Active Substance: MONTELUKAST SODIUM
     Dosage: 10 MG, UNK
     Route: 065
  14. SULFAMETHOXAZOLE AND TRIMETHOPRIM [Suspect]
     Active Substance: SULFAMETHOXAZOLE\TRIMETHOPRIM
     Dosage: UNK
     Route: 065
  15. PREDNISONE. [Suspect]
     Active Substance: PREDNISONE
     Indication: CHEST PAIN
     Dosage: 15 MG, UNK
     Route: 065

REACTIONS (25)
  - Anxiety [Unknown]
  - Asthma [Unknown]
  - Drug resistance [Unknown]
  - Dyspnoea [Unknown]
  - Pneumococcal infection [Unknown]
  - Blood count abnormal [Unknown]
  - Drug hypersensitivity [Unknown]
  - Infection [Unknown]
  - Productive cough [Unknown]
  - Wheezing [Unknown]
  - Bronchial obstruction [Unknown]
  - Chest discomfort [Unknown]
  - Therapeutic product effect incomplete [Unknown]
  - Musculoskeletal chest pain [Unknown]
  - Osteoporosis [Unknown]
  - Poor quality sleep [Unknown]
  - Chest pain [Unknown]
  - Condition aggravated [Unknown]
  - Rib fracture [Unknown]
  - Sinusitis [Unknown]
  - Sputum discoloured [Unknown]
  - Upper limb fracture [Unknown]
  - Cough [Unknown]
  - Limb discomfort [Unknown]
  - Loss of personal independence in daily activities [Unknown]
